FAERS Safety Report 7511370-X (Version None)
Quarter: 2011Q2

REPORT INFORMATION
  Report Type: 
  Country: None (occurrence: None)
  Receive Date: 20110531
  Receipt Date: 20110520
  Transmission Date: 20111010
  Serious: Yes (Hospitalization, Other)
  Sender: FDA-Public Use
  Company Number: US-BAYER-201030245NA

PATIENT
  Age: 27 Year
  Sex: Female
  Weight: 65 kg

DRUGS (7)
  1. NAPROXEN (ALEVE) [Concomitant]
     Indication: PRODUCT USED FOR UNKNOWN INDICATION
     Route: 048
  2. YAZ [Suspect]
     Indication: ACNE
     Dates: start: 20050501, end: 20060501
  3. MYLANTA [CALCIUM CARBONATE] [Concomitant]
     Indication: PRODUCT USED FOR UNKNOWN INDICATION
     Dosage: 1 TPS
     Route: 048
  4. CLARITHROMYCIN [Concomitant]
     Indication: PRODUCT USED FOR UNKNOWN INDICATION
     Route: 048
     Dates: start: 20080302, end: 20100426
  5. YAZ [Suspect]
     Indication: PREMENSTRUAL SYNDROME
     Dosage: 1 TABLET/DAY
     Dates: start: 20071001, end: 20080501
  6. IBUPROFEN [Concomitant]
     Indication: PRODUCT USED FOR UNKNOWN INDICATION
  7. HYDROCODONE BITARTRATE AND ACETAMINOPHEN [Concomitant]
     Indication: PRODUCT USED FOR UNKNOWN INDICATION
     Dosage: 5/ 500 MG
     Route: 048
     Dates: start: 20071129, end: 20091030

REACTIONS (5)
  - CHOLECYSTITIS CHRONIC [None]
  - NAUSEA [None]
  - CHOLELITHIASIS [None]
  - NEPHROLITHIASIS [None]
  - ABDOMINAL PAIN [None]
